FAERS Safety Report 8884148 (Version 1)
Quarter: 2012Q4

REPORT INFORMATION
  Report Type: 
  Country: US (occurrence: US)
  Receive Date: 20121102
  Receipt Date: 20121102
  Transmission Date: 20130627
  Serious: No
  Sender: FDA-Public Use
  Company Number: US-ASTRAZENECA-2012SE14389

PATIENT
  Age: 52 Year
  Sex: Female
  Weight: 83.9 kg

DRUGS (6)
  1. CRESTOR [Suspect]
     Indication: BLOOD CHOLESTEROL ABNORMAL
     Route: 048
     Dates: end: 20110131
  2. LISINOPRIL [Concomitant]
     Indication: BLOOD CHOLESTEROL ABNORMAL
  3. SYNTHROID [Concomitant]
  4. REQUIP [Concomitant]
  5. PRISTIQ [Concomitant]
  6. METENEX [Concomitant]

REACTIONS (6)
  - Pain [Recovered/Resolved]
  - Malaise [Recovered/Resolved]
  - Gait disturbance [Recovered/Resolved]
  - Restless legs syndrome [Recovered/Resolved]
  - Fatigue [Recovered/Resolved]
  - Insomnia [Recovered/Resolved]
